FAERS Safety Report 6291081-1 (Version None)
Quarter: 2009Q3

REPORT INFORMATION
  Report Type: 
  Country: None (occurrence: None)
  Receive Date: 20090730
  Receipt Date: 20090724
  Transmission Date: 20100115
  Serious: Yes (Other)
  Sender: FDA-Public Use
  Company Number: A0783769A

PATIENT
  Age: 2 Year
  Sex: Male

DRUGS (1)
  1. AUGMENTIN '125' [Suspect]
     Indication: DRUG USE FOR UNKNOWN INDICATION
     Dosage: 2TSP TWICE PER DAY
     Route: 048

REACTIONS (2)
  - DRUG INTOLERANCE [None]
  - MELAENA [None]
